FAERS Safety Report 20462764 (Version 1)
Quarter: 2022Q1

REPORT INFORMATION
  Report Type: Report from Study
  Country: US (occurrence: US)
  Receive Date: 20220211
  Receipt Date: 20220211
  Transmission Date: 20220423
  Serious: Yes (Death)
  Sender: FDA-Public Use
  Company Number: US-NOVARTISPH-NVSC2022US031294

PATIENT
  Sex: Female

DRUGS (1)
  1. KISQALI [Suspect]
     Active Substance: RIBOCICLIB
     Indication: Bone cancer
     Dosage: 1 DOSAGE FORM (200 MG), QD (FOR 21 OF EVERY 28 DAYS)
     Route: 048
     Dates: start: 20200102

REACTIONS (1)
  - Death [Fatal]
